FAERS Safety Report 5164820-0 (Version None)
Quarter: 2006Q4

REPORT INFORMATION
  Report Type: 
  Country: None (occurrence: None)
  Receive Date: 20061205
  Receipt Date: 20061127
  Transmission Date: 20070319
  Serious: Yes (Death)
  Sender: FDA-Public Use
  Company Number: FR-BRISTOL-MYERS SQUIBB COMPANY-13595129

PATIENT
  Age: 74 Year
  Sex: Female
  Weight: 46 kg

DRUGS (9)
  1. PARAPLATIN [Suspect]
     Indication: LUNG NEOPLASM MALIGNANT
     Route: 042
     Dates: start: 20060621, end: 20060621
  2. VEPESIDE-SANDOZ [Suspect]
     Indication: LUNG NEOPLASM MALIGNANT
     Route: 042
     Dates: start: 20060621, end: 20060623
  3. COTAREG [Concomitant]
  4. HEMIGOXINE NATIVELLE [Concomitant]
  5. LEXOMIL [Concomitant]
  6. EFFERALGAN [Concomitant]
  7. SINTROM [Concomitant]
  8. LASIX [Concomitant]
  9. DUPHALAC [Concomitant]

REACTIONS (4)
  - AGRANULOCYTOSIS [None]
  - PLEURISY [None]
  - SEPSIS [None]
  - SHOCK [None]
